FAERS Safety Report 23831121 (Version 1)
Quarter: 2024Q2

REPORT INFORMATION
  Report Type: Spontaneous
  Country: FR (occurrence: FR)
  Receive Date: 20240508
  Receipt Date: 20240508
  Transmission Date: 20240716
  Serious: Yes (Other)
  Sender: FDA-Public Use
  Company Number: FR-JNJFOC-20240513678

PATIENT
  Sex: Female

DRUGS (2)
  1. HALDOL [Suspect]
     Active Substance: HALOPERIDOL
     Indication: Accidental overdose
     Dosage: 10 DROP (1/12 MILLILITRE)
     Route: 048
     Dates: start: 2020, end: 2020
  2. PERICIAZINE [Suspect]
     Active Substance: PERICIAZINE
     Indication: Accidental overdose
     Dosage: 10 DROP (1/12 MILLILITRE)
     Route: 048
     Dates: start: 2020, end: 2020

REACTIONS (3)
  - Clonus [Unknown]
  - Facial spasm [Unknown]
  - Accidental overdose [Unknown]

NARRATIVE: CASE EVENT DATE: 20240401
